FAERS Safety Report 5177104-1 (Version None)
Quarter: 2006Q4

REPORT INFORMATION
  Report Type: 
  Country: None (occurrence: None)
  Receive Date: 20061207
  Receipt Date: 20061201
  Transmission Date: 20070319
  Serious: Yes (Death)
  Sender: FDA-Public Use
  Company Number: 2006144090

PATIENT
  Age: 64 Year
  Sex: Male
  Weight: 70 kg

DRUGS (9)
  1. LYRICA [Suspect]
     Indication: DIABETIC NEUROPATHY
     Dosage: 150 MG (75 MG, 2 IN 1 D), ORAL
     Route: 048
     Dates: start: 20061108
  2. OMEP (OMEPRAZOLE) [Concomitant]
  3. TORSEMIDE [Concomitant]
  4. ENALAPRIL MALEATE [Concomitant]
  5. TILIDINE (TILIDINE) [Concomitant]
  6. KATADOLON (FLUPRIRTINE MATEATE) [Concomitant]
  7. MEGLUCON (METFORMIN HYDROCHLORIDE) [Concomitant]
  8. SIMVASTATIN [Concomitant]
  9. PIROXICAM [Concomitant]

REACTIONS (2)
  - MYOCARDIAL INFARCTION [None]
  - SUDDEN DEATH [None]
